FAERS Safety Report 25060495 (Version 1)
Quarter: 2025Q1

REPORT INFORMATION
  Report Type: Spontaneous
  Country: US (occurrence: US)
  Receive Date: 20250310
  Receipt Date: 20250310
  Transmission Date: 20250409
  Serious: No
  Sender: MYLAN
  Company Number: US-MYLANLABS-2025M1019022

PATIENT
  Age: 77 Year
  Sex: Male

DRUGS (1)
  1. BREYNA [Suspect]
     Active Substance: BUDESONIDE\FORMOTEROL FUMARATE
     Indication: Pneumonia
     Dosage: 80/4.5 MICROGRAM, BID (TWICE A DAY)
     Dates: start: 20250302

REACTIONS (2)
  - Off label use [Unknown]
  - Device delivery system issue [Unknown]

NARRATIVE: CASE EVENT DATE: 20250302
